FAERS Safety Report 7131708-5 (Version None)
Quarter: 2010Q4

REPORT INFORMATION
  Report Type: 
  Country: None (occurrence: None)
  Receive Date: 20101201
  Receipt Date: 20101118
  Transmission Date: 20110411
  Serious: Yes (Other)
  Sender: FDA-Public Use
  Company Number: TR-MYLANLABS-2010S1021602

PATIENT
  Age: 40 Year
  Sex: Male

DRUGS (3)
  1. TOPIRAMATE [Suspect]
     Indication: MIGRAINE PROPHYLAXIS
     Route: 065
  2. TOPIRAMATE [Suspect]
     Route: 065
  3. TOPIRAMATE [Suspect]
     Route: 065

REACTIONS (4)
  - ANORGASMIA [None]
  - FATIGUE [None]
  - PARAESTHESIA [None]
  - SPEECH DISORDER [None]
